FAERS Safety Report 8023708-8 (Version None)
Quarter: 2012Q1

REPORT INFORMATION
  Report Type: 
  Country: None (occurrence: None)
  Receive Date: 20120105
  Receipt Date: 20120104
  Transmission Date: 20120608
  Serious: Yes (Hospitalization)
  Sender: FDA-Public Use
  Company Number: US-BAYER-2012-000920

PATIENT
  Sex: Female

DRUGS (11)
  1. BETASERON [Suspect]
     Indication: PRODUCT USED FOR UNKNOWN INDICATION
     Dosage: 0.25 ML, QOD, WKS1-2
  2. BETASERON [Suspect]
     Dosage: 0.5 UNK, QOD, WKS3-4
  3. MIDODRINE HYDROCHLORIDE [Concomitant]
  4. DILTIAZEM HCL [Concomitant]
  5. ALBUTEROL [Concomitant]
  6. BETASERON [Suspect]
     Dosage: 0.75 UNK, QOD, WKS5-6
  7. SYMBICORT [Concomitant]
  8. BETASERON [Suspect]
     Dosage: 1 ML, QOD, WKS 7
  9. COMBIVENT [Concomitant]
  10. NEXIUM [Concomitant]
  11. SIMVASTATIN [Concomitant]

REACTIONS (3)
  - DYSPNOEA [None]
  - CHEST PAIN [None]
  - PULMONARY OEDEMA [None]
